FAERS Safety Report 5411477-7 (Version None)
Quarter: 2007Q3

REPORT INFORMATION
  Report Type: 
  Country: None (occurrence: None)
  Receive Date: 20070810
  Receipt Date: 20070730
  Transmission Date: 20080115
  Serious: Yes (Death, Hospitalization)
  Sender: FDA-Public Use
  Company Number: US-SHR-US-2007-028301

PATIENT
  Age: 53 Year
  Sex: Male

DRUGS (1)
  1. BETASERON [Suspect]
     Route: 058
     Dates: start: 20010730, end: 20070725

REACTIONS (4)
  - DYSPNOEA [None]
  - PULSE PRESSURE DECREASED [None]
  - RESPIRATORY DISORDER [None]
  - SKIN DISCOLOURATION [None]
